FAERS Safety Report 10202006 (Version 1)
Quarter: 2014Q2

REPORT INFORMATION
  Report Type: Spontaneous
  Country: PR (occurrence: PR)
  Receive Date: 20140528
  Receipt Date: 20140528
  Transmission Date: 20141212
  Serious: No
  Sender: FDA-Public Use
  Company Number: PR-BRISTOL-MYERS SQUIBB COMPANY-19863216

PATIENT
  Age: 70 Year
  Sex: Female

DRUGS (2)
  1. ONGLYZA TABS [Suspect]
     Route: 048
  2. METFORMIN HCL [Suspect]

REACTIONS (2)
  - Tongue discolouration [Unknown]
  - Skin discolouration [Unknown]
